FAERS Safety Report 7911417-2 (Version None)
Quarter: 2011Q4

REPORT INFORMATION
  Report Type: 
  Country: None (occurrence: None)
  Receive Date: 20111114
  Receipt Date: 20111110
  Transmission Date: 20120403
  Serious: Yes (Hospitalization)
  Sender: FDA-Public Use
  Company Number: CA-SANOFI-AVENTIS-2011SA067562

PATIENT
  Age: 76 Year
  Sex: Male
  Weight: 91.4 kg

DRUGS (3)
  1. JEVTANA KIT [Suspect]
     Indication: PROSTATE CANCER METASTATIC
     Route: 042
     Dates: start: 20110825, end: 20110825
  2. PREDNISONE TAB [Suspect]
     Indication: PROSTATE CANCER METASTATIC
     Route: 048
  3. JEVTANA KIT [Suspect]
     Route: 042
     Dates: start: 20111006, end: 20111006

REACTIONS (1)
  - MUSCULAR WEAKNESS [None]
